FAERS Safety Report 8853644 (Version 2)
Quarter: 2013Q2

REPORT INFORMATION
  Report Type: Spontaneous
  Country: US (occurrence: None)
  Receive Date: 20120426
  Receipt Date: 20120703
  Transmission Date: 20140414
  Serious: Yes (Other)
  Sender: FDA-Public Use
  Company Number: PHEH2012US004778

PATIENT
  Age: 52 Year
  Sex: Female

DRUGS (6)
  1. GILENYA [Suspect]
     Indication: MULTIPLE SCLEROSIS
     Route: 048
     Dates: start: 201201
  2. PROZAC (FLUOXETINE HYDROCHLORIDE) [Concomitant]
  3. GABAPENTIN (GABAPENTIN) [Concomitant]
  4. FLUOXETINE (FLUOXETINE) CAPSULE, 40 MG [Concomitant]
  5. ESTRADIOL (ESTRADIOL) TABLET, 2 MG [Concomitant]
  6. LEVOTHYROXINE (LEVOTHYROXINE) TABLET [Concomitant]

REACTIONS (2)
  - Depression [None]
  - Fatigue [None]
